FAERS Safety Report 18849330 (Version 5)
Quarter: 2021Q2

REPORT INFORMATION
  Report Type: Report from Study
  Country: US (occurrence: US)
  Receive Date: 20210205
  Receipt Date: 20210619
  Transmission Date: 20210717
  Serious: No
  Sender: FDA-Public Use
  Company Number: NVSC2021US023121

PATIENT
  Age: 56 Year
  Sex: Male

DRUGS (1)
  1. COSENTYX [Suspect]
     Active Substance: SECUKINUMAB
     Indication: PSORIASIS
     Dosage: 300 MG
     Route: 058

REACTIONS (3)
  - Drug ineffective [Unknown]
  - Pruritus [Not Recovered/Not Resolved]
  - Psoriasis [Recovering/Resolving]
